FAERS Safety Report 19879063 (Version 1)
Quarter: 2021Q3

REPORT INFORMATION
  Report Type: Report from Study
  Country: None (occurrence: BR)
  Receive Date: 20210924
  Receipt Date: 20210924
  Transmission Date: 20211014
  Serious: Yes (Disabling)
  Sender: FDA-Public Use
  Company Number: BR-ABBVIE-21K-020-4090726-00

PATIENT
  Age: 60 Year
  Sex: Female

DRUGS (3)
  1. RINVOQ [Suspect]
     Active Substance: UPADACITINIB
     Indication: RHEUMATOID ARTHRITIS
     Dosage: UNSPECIFIC DOSE
     Route: 048
  2. RINVOQ [Suspect]
     Active Substance: UPADACITINIB
     Dosage: UNSPECIFIC DOSE
     Route: 048
     Dates: start: 20210914, end: 202109
  3. RINVOQ [Suspect]
     Active Substance: UPADACITINIB
     Dosage: UNSPECIFIC DOSE
     Route: 048
     Dates: start: 20210919

REACTIONS (2)
  - Femur fracture [Unknown]
  - Medical device implantation [Unknown]

NARRATIVE: CASE EVENT DATE: 202109
